FAERS Safety Report 15305811 (Version 3)
Quarter: 2019Q2

REPORT INFORMATION
  Report Type: Report from Study
  Country: BR (occurrence: BR)
  Receive Date: 20180822
  Receipt Date: 20190412
  Transmission Date: 20190711
  Serious: Yes (Other)
  Sender: FDA-Public Use
  Company Number: BR-EMD SERONO-E2B_90045157

PATIENT
  Sex: Male

DRUGS (3)
  1. REBIF [Suspect]
     Active Substance: INTERFERON BETA-1A
     Indication: MULTIPLE SCLEROSIS
     Dosage: SYRINGE, TITRATION DOSE
     Route: 058
     Dates: start: 20180418
  2. REBIF [Suspect]
     Active Substance: INTERFERON BETA-1A
     Dosage: DOSE INCREASED
     Route: 058
     Dates: start: 2018
  3. DIPYRONE [Concomitant]
     Active Substance: DIPYRONE
     Indication: PREMEDICATION

REACTIONS (11)
  - Facial pain [Unknown]
  - Influenza like illness [Recovered/Resolved]
  - Injection site warmth [Unknown]
  - Pain [Unknown]
  - Oropharyngeal pain [Unknown]
  - Muscle spasms [Unknown]
  - Hypokinesia [Unknown]
  - Hemiplegia [Recovered/Resolved]
  - Headache [Unknown]
  - Lymphadenopathy [Not Recovered/Not Resolved]
  - Arthralgia [Unknown]

NARRATIVE: CASE EVENT DATE: 2018
